FAERS Safety Report 11360133 (Version 3)
Quarter: 2015Q4

REPORT INFORMATION
  Report Type: Spontaneous
  Country: US (occurrence: US)
  Receive Date: 20150810
  Receipt Date: 20151130
  Transmission Date: 20160304
  Serious: Yes (Other)
  Sender: FDA-Public Use
  Company Number: US-ROCHE-1619306

PATIENT
  Sex: Male
  Weight: 77.18 kg

DRUGS (1)
  1. ESBRIET [Suspect]
     Active Substance: PIRFENIDONE
     Indication: IDIOPATHIC PULMONARY FIBROSIS
     Dosage: ON 19/JAN/2015, HE STARTED TAKING 1602 MG DAILY.
     Route: 048
     Dates: start: 20150107

REACTIONS (2)
  - Bone cancer [Unknown]
  - Pruritus [Unknown]
